FAERS Safety Report 7623982-3 (Version None)
Quarter: 2011Q3

REPORT INFORMATION
  Report Type: 
  Country: None (occurrence: None)
  Receive Date: 20110720
  Receipt Date: 20110603
  Transmission Date: 20111222
  Serious: Yes (Other)
  Sender: FDA-Public Use
  Company Number: US-BRISTOL-MYERS SQUIBB COMPANY-15802499

PATIENT

DRUGS (1)
  1. YERVOY [Suspect]

REACTIONS (1)
  - COLITIS [None]
